FAERS Safety Report 4835745-2 (Version None)
Quarter: 2005Q4

REPORT INFORMATION
  Report Type: 
  Country: None (occurrence: None)
  Receive Date: 20051118
  Receipt Date: 20051109
  Transmission Date: 20060501
  Serious: Yes (Other)
  Sender: FDA-Public Use
  Company Number: 2005154168

PATIENT
  Age: 65 Year
  Sex: Female
  Weight: 99.7913 kg

DRUGS (7)
  1. LIPITOR [Suspect]
  2. ZOLOFT [Suspect]
     Indication: AFFECT LABILITY
     Dosage: 50 MG (50 MG, 1 IN 1 D)
  3. AVANDIA [Concomitant]
  4. AMARYL [Concomitant]
  5. GLUCOPHAGE [Concomitant]
  6. INSULIN [Concomitant]
  7. LISINOPRIL [Concomitant]

REACTIONS (1)
  - CARPAL TUNNEL SYNDROME [None]
